FAERS Safety Report 14525426 (Version 3)
Quarter: 2018Q1

REPORT INFORMATION
  Report Type: Other
  Country: PL (occurrence: PL)
  Receive Date: 20180213
  Receipt Date: 20180319
  Transmission Date: 20180509
  Serious: Yes (Death, Hospitalization, Other)
  Sender: FDA-Public Use
  Company Number: PL-VELOXIS PHARMACEUTICALS-2041860

PATIENT
  Age: 57 Year
  Sex: Female

DRUGS (2)
  1. ENVARSUS XR [Suspect]
     Active Substance: TACROLIMUS
     Indication: RENAL TRANSPLANT
  2. MYCOPHENOLATE MOFETIL. [Suspect]
     Active Substance: MYCOPHENOLATE MOFETIL

REACTIONS (4)
  - Haemolytic anaemia [Unknown]
  - Cardiac failure chronic [Unknown]
  - Endocarditis [Not Recovered/Not Resolved]
  - Device leakage [Unknown]
